FAERS Safety Report 5091811-0 (Version None)
Quarter: 2006Q3

REPORT INFORMATION
  Report Type: 
  Country: None (occurrence: None)
  Receive Date: 20060829
  Receipt Date: 20060613
  Transmission Date: 20061208
  Serious: No
  Sender: FDA-Public Use
  Company Number: US-BRISTOL-MYERS SQUIBB COMPANY-13410147

PATIENT
  Age: 72 Year
  Sex: Male
  Weight: 65 kg

DRUGS (12)
  1. ERBITUX [Suspect]
     Indication: COLON CANCER
     Route: 042
     Dates: start: 20060508, end: 20060508
  2. DILTIAZEM HCL [Concomitant]
  3. ISOSORBIDE MONONITRATE [Concomitant]
  4. TOPROL-XL [Concomitant]
  5. WARFARIN SODIUM [Concomitant]
  6. PRILOSEC [Concomitant]
  7. LANOXIN [Concomitant]
  8. ALBUTEROL SPIROS [Concomitant]
  9. BENADRYL [Concomitant]
     Indication: PREMEDICATION
     Dates: start: 20060508, end: 20060508
  10. PEPCID [Concomitant]
     Indication: PREMEDICATION
     Dates: start: 20060508, end: 20060508
  11. ZOFRAN [Concomitant]
     Indication: PREMEDICATION
     Dates: start: 20060508, end: 20060508
  12. DEXTROSE 5% 1/2 NORMAL SALINE + KCL [Concomitant]
     Dates: start: 20060508, end: 20060508

REACTIONS (3)
  - DRY SKIN [None]
  - ERYTHEMA [None]
  - PERIORBITAL OEDEMA [None]
